FAERS Safety Report 14524028 (Version 2)
Quarter: 2018Q2

REPORT INFORMATION
  Report Type: Report from Study
  Country: US (occurrence: US)
  Receive Date: 20180213
  Receipt Date: 20180406
  Transmission Date: 20180711
  Serious: No
  Sender: FDA-Public Use
  Company Number: US-B.I. PHARMACEUTICALS,INC./RIDGEFIELD-2018-BI-007099

PATIENT
  Age: 78 Year
  Sex: Male

DRUGS (2)
  1. OFEV [Suspect]
     Active Substance: NINTEDANIB
     Route: 048
     Dates: start: 20170131
  2. OFEV [Suspect]
     Active Substance: NINTEDANIB
     Indication: IDIOPATHIC PULMONARY FIBROSIS
     Route: 048
     Dates: start: 2010

REACTIONS (4)
  - Pneumonia [Not Recovered/Not Resolved]
  - Dysphonia [Unknown]
  - Influenza [Unknown]
  - Oxygen consumption [Not Recovered/Not Resolved]

NARRATIVE: CASE EVENT DATE: 201801
